FAERS Safety Report 4687285-1 (Version None)
Quarter: 2005Q2

REPORT INFORMATION
  Report Type: 
  Country: None (occurrence: None)
  Receive Date: 20050608
  Receipt Date: 20050526
  Transmission Date: 20051028
  Serious: Yes (Other)
  Sender: FDA-Public Use
  Company Number: 2005080957

PATIENT
  Age: 44 Year
  Sex: Female
  Weight: 117.028 kg

DRUGS (12)
  1. CELEBREX [Suspect]
     Indication: FIBROMYALGIA
     Dosage: 400 MG (200 MG, 2 IN 1 D), ORAL
     Route: 048
     Dates: start: 19950101
  2. CELEBREX [Suspect]
     Indication: RHEUMATOID ARTHRITIS
     Dosage: 400 MG (200 MG, 2 IN 1 D), ORAL
     Route: 048
     Dates: start: 19950101
  3. CELEBREX [Suspect]
     Indication: SURGERY
     Dosage: 400 MG (200 MG, 2 IN 1 D), ORAL
     Route: 048
     Dates: start: 19950101
  4. NEURONTIN [Suspect]
     Indication: FIBROMYALGIA
  5. NEURONTIN [Suspect]
     Indication: RHEUMATOID ARTHRITIS
  6. NEURONTIN [Suspect]
     Indication: SURGERY
  7. ACCUPRIL [Suspect]
     Indication: HYPERTENSION
  8. AMBIEN [Concomitant]
  9. EFFEXOR [Concomitant]
  10. OXYCONTIN [Concomitant]
  11. MAXZIDE [Concomitant]
  12. POTASSIUM ACETATE [Concomitant]

REACTIONS (4)
  - BLOOD CHOLESTEROL INCREASED [None]
  - GASTRIC ULCER [None]
  - HYPERTENSION [None]
  - INTERVERTEBRAL DISC PROTRUSION [None]
